FAERS Safety Report 6758780-6 (Version None)
Quarter: 2010Q2

REPORT INFORMATION
  Report Type: 
  Country: None (occurrence: None)
  Receive Date: 20100603
  Receipt Date: 20100524
  Transmission Date: 20101027
  Serious: Yes (Hospitalization)
  Sender: FDA-Public Use
  Company Number: TCI2010A01964

PATIENT
  Age: 68 Year
  Sex: Female

DRUGS (4)
  1. ACTOS [Suspect]
     Dosage: PER ORAL
     Route: 048
     Dates: start: 20100414
  2. CANDESARTAN CILEXETIL [Suspect]
     Dosage: PER ORAL, PER ORAL
     Route: 048
     Dates: start: 20100414
  3. PRAVASTATIN SODIUM [Suspect]
     Indication: HYPOKALAEMIA
     Dosage: PER ORAL
     Route: 048
     Dates: start: 20100414
  4. PRAVASTATIN SODIUM [Suspect]
     Indication: RENAL FAILURE ACUTE
     Dosage: PER ORAL
     Route: 048
     Dates: start: 20100414

REACTIONS (2)
  - HYPOKALAEMIA [None]
  - RENAL FAILURE ACUTE [None]
